FAERS Safety Report 9836936 (Version 1)
Quarter: 2014Q1

REPORT INFORMATION
  Report Type: Spontaneous
  Country: US (occurrence: US)
  Receive Date: 20140123
  Receipt Date: 20140123
  Transmission Date: 20141002
  Serious: No
  Sender: FDA-Public Use
  Company Number: US-PFIZER INC-2014017048

PATIENT
  Age: 25 Year
  Sex: Male

DRUGS (3)
  1. XELJANZ [Suspect]
     Indication: JUVENILE IDIOPATHIC ARTHRITIS
     Dosage: 5 MG, 2X/DAY
  2. STELARA [Concomitant]
     Indication: PSORIASIS
     Dosage: UNK
  3. CYTOXAN [Concomitant]
     Indication: UVEITIS
     Dosage: UNK

REACTIONS (2)
  - Intentional drug misuse [Unknown]
  - Blood alkaline phosphatase increased [Unknown]
